FAERS Safety Report 18849635 (Version 1)
Quarter: 2021Q1

REPORT INFORMATION
  Report Type: Spontaneous
  Country: US (occurrence: US)
  Receive Date: 20210204
  Receipt Date: 20210204
  Transmission Date: 20210419
  Serious: Yes (Other)
  Sender: FDA-Public Use
  Company Number: US-ALLERGAN-2104824US

PATIENT
  Sex: Male

DRUGS (2)
  1. COMBIGAN [Suspect]
     Active Substance: BRIMONIDINE TARTRATE\TIMOLOL MALEATE
     Indication: GLAUCOMA
     Dosage: UNK
     Route: 047
     Dates: start: 201701, end: 201712
  2. LUMIGAN [Suspect]
     Active Substance: BIMATOPROST
     Indication: GLAUCOMA
     Dosage: UNK

REACTIONS (3)
  - Blindness unilateral [Unknown]
  - Visual impairment [Unknown]
  - Condition aggravated [Unknown]

NARRATIVE: CASE EVENT DATE: 201709
